FAERS Safety Report 10700814 (Version 4)
Quarter: 2015Q2

REPORT INFORMATION
  Report Type: Spontaneous
  Country: CA (occurrence: CA)
  Receive Date: 20150109
  Receipt Date: 20150421
  Transmission Date: 20150821
  Serious: Yes (Other)
  Sender: FDA-Public Use
  Company Number: CA-RB PHARMACEUTICALS LIMITED-RB-74673-2014

PATIENT
  Age: 0 Year
  Sex: Male
  Weight: 2.65 kg

DRUGS (11)
  1. NICOTINE. [Suspect]
     Active Substance: NICOTINE
     Indication: PRODUCT USED FOR UNKNOWN INDICATION
     Dosage: 2-5 CIGARETTES DAILY
     Route: 064
     Dates: start: 20140110, end: 20141020
  2. CIPRALEX [Suspect]
     Active Substance: ESCITALOPRAM OXALATE
     Indication: DEPRESSION
     Dosage: 30 MG DIALY
     Route: 064
     Dates: start: 20140110, end: 20141020
  3. VITAMIN D3 [Suspect]
     Active Substance: CHOLECALCIFEROL
     Indication: PRODUCT USED FOR UNKNOWN INDICATION
     Dosage: 1000 IU DAILY
     Route: 064
     Dates: start: 201403, end: 20141020
  4. SUBOXONE [Suspect]
     Active Substance: BUPRENORPHINE HYDROCHLORIDE\NALOXONE HYDROCHLORIDE
     Indication: DRUG DEPENDENCE
     Dosage: 10 MG, DAILY
     Route: 064
     Dates: start: 20140110, end: 20140304
  5. CIPRALEX [Suspect]
     Active Substance: ESCITALOPRAM OXALATE
     Indication: ANXIETY
  6. FOLIC ACID. [Suspect]
     Active Substance: FOLIC ACID
     Indication: PRODUCT USED FOR UNKNOWN INDICATION
     Dosage: 1000 ?G, QD
     Route: 064
     Dates: start: 201403, end: 20141020
  7. SUBOXONE [Suspect]
     Active Substance: BUPRENORPHINE HYDROCHLORIDE\NALOXONE HYDROCHLORIDE
     Dosage: 12 MG, DAILY
     Route: 063
     Dates: start: 20141020
  8. SUBUTEX [Suspect]
     Active Substance: BUPRENORPHINE HYDROCHLORIDE
     Dosage: 12 MG, DAILY
     Route: 064
     Dates: start: 2014, end: 20141020
  9. PRENATAL VITAMINS [Concomitant]
     Active Substance: VITAMINS
     Indication: PRODUCT USED FOR UNKNOWN INDICATION
     Dosage: UNK
     Route: 064
  10. CALCIUM [Suspect]
     Active Substance: CALCIUM
     Indication: PRODUCT USED FOR UNKNOWN INDICATION
     Dosage: 1000 MG
     Route: 064
     Dates: start: 201403, end: 20141020
  11. SUBUTEX [Suspect]
     Active Substance: BUPRENORPHINE HYDROCHLORIDE
     Indication: DRUG DEPENDENCE
     Dosage: 10 MG, DAILY
     Route: 064
     Dates: start: 20140305, end: 2014

REACTIONS (13)
  - Knee deformity [Recovered/Resolved]
  - Exposure during breast feeding [Not Recovered/Not Resolved]
  - Hyperbilirubinaemia neonatal [Unknown]
  - Neonatal respiratory distress syndrome [Recovered/Resolved]
  - Drug withdrawal syndrome neonatal [Recovered/Resolved]
  - Facial asymmetry [Unknown]
  - Weight decrease neonatal [Unknown]
  - Foetal exposure during pregnancy [Recovered/Resolved]
  - Jaundice neonatal [Recovered/Resolved]
  - Feeding disorder neonatal [Unknown]
  - Talipes [Recovered/Resolved]
  - Agitation neonatal [Unknown]
  - Hypoglycaemia neonatal [Recovered/Resolved]

NARRATIVE: CASE EVENT DATE: 20140110
